FAERS Safety Report 9102832 (Version 2)
Quarter: 2013Q4

REPORT INFORMATION
  Report Type: Report from Study
  Country: US (occurrence: US)
  Receive Date: 20130219
  Receipt Date: 20131003
  Transmission Date: 20140711
  Serious: Yes (Hospitalization)
  Sender: FDA-Public Use
  Company Number: US-JNJFOC-20130207915

PATIENT
  Sex: Female
  Weight: 106.6 kg

DRUGS (4)
  1. STELARA [Suspect]
     Indication: PSORIASIS
     Route: 058
     Dates: start: 201107
  2. STELARA [Suspect]
     Indication: PSORIASIS
     Route: 058
     Dates: start: 2010, end: 2010
  3. ATARAX [Suspect]
     Indication: PRURITUS
  4. DOXEPIN [Suspect]
     Indication: PRURITUS
     Dosage: 10 MG DOSE; UP TO 5 AS NEEDED

REACTIONS (5)
  - Arthralgia [Unknown]
  - Blood blister [Not Recovered/Not Resolved]
  - Psoriasis [Not Recovered/Not Resolved]
  - Drug ineffective [Not Recovered/Not Resolved]
  - Pruritus generalised [Not Recovered/Not Resolved]
